FAERS Safety Report 6925001-0 (Version None)
Quarter: 2010Q3

REPORT INFORMATION
  Report Type: 
  Country: None (occurrence: None)
  Receive Date: 20100816
  Receipt Date: 20100805
  Transmission Date: 20110219
  Serious: Yes (Other)
  Sender: FDA-Public Use
  Company Number: CH-ASTRAZENECA-2010SE37088

PATIENT
  Age: 36 Year
  Sex: Female

DRUGS (3)
  1. NOLVADEX [Suspect]
     Indication: BREAST CANCER
     Route: 048
     Dates: end: 20100101
  2. TAXOL [Concomitant]
     Indication: BREAST CANCER
     Dates: end: 20090301
  3. HERCEPTIN [Concomitant]
     Indication: BREAST CANCER
     Dates: end: 20091101

REACTIONS (1)
  - DRUG EXPOSURE DURING PREGNANCY [None]
